FAERS Safety Report 7067704-6 (Version None)
Quarter: 2010Q4

REPORT INFORMATION
  Report Type: 
  Country: None (occurrence: None)
  Receive Date: 20101028
  Receipt Date: 20101018
  Transmission Date: 20110411
  Serious: Yes (Hospitalization, Other)
  Sender: FDA-Public Use
  Company Number: PHHY2010CN68947

PATIENT
  Sex: Male

DRUGS (2)
  1. SEBIVO [Suspect]
     Dosage: UNK
  2. ADEFOVIR DIPIVOXIL KIT [Concomitant]

REACTIONS (9)
  - ABDOMINAL DISCOMFORT [None]
  - BLOOD CREATINE PHOSPHOKINASE INCREASED [None]
  - BLOOD LACTIC ACID INCREASED [None]
  - CHEST DISCOMFORT [None]
  - GASTROINTESTINAL DISORDER [None]
  - HEPATITIS B DNA INCREASED [None]
  - MUSCLE DISORDER [None]
  - MUSCULOSKELETAL DISCOMFORT [None]
  - THERAPEUTIC RESPONSE DECREASED [None]
